FAERS Safety Report 15751668 (Version 4)
Quarter: 2019Q1

REPORT INFORMATION
  Report Type: Spontaneous
  Country: US (occurrence: US)
  Receive Date: 20181221
  Receipt Date: 20190215
  Transmission Date: 20190417
  Serious: No
  Sender: FDA-Public Use
  Company Number: US-GLAXOSMITHKLINE-US2018226091

PATIENT
  Sex: Female

DRUGS (2)
  1. METHOTREXATE. [Concomitant]
     Active Substance: METHOTREXATE
  2. BENLYSTA [Suspect]
     Active Substance: BELIMUMAB
     Indication: SYSTEMIC LUPUS ERYTHEMATOSUS
     Dosage: 200 MG, WE
     Route: 058

REACTIONS (13)
  - Arthralgia [Unknown]
  - Nasopharyngitis [Unknown]
  - Spinal pain [Unknown]
  - Myalgia [Unknown]
  - Laryngitis [Recovered/Resolved]
  - Oropharyngeal pain [Unknown]
  - Fatigue [Unknown]
  - Weight decreased [Unknown]
  - Wrong technique in product usage process [Recovered/Resolved]
  - Therapeutic response unexpected [Unknown]
  - Respiratory disorder [Unknown]
  - Throat irritation [Unknown]
  - Cough [Unknown]
